FAERS Safety Report 7230214-7 (Version None)
Quarter: 2011Q1

REPORT INFORMATION
  Report Type: 
  Country: None (occurrence: None)
  Receive Date: 20110118
  Receipt Date: 20110105
  Transmission Date: 20110831
  Serious: Yes (Death)
  Sender: FDA-Public Use
  Company Number: ES-US-EMD SERONO, INC.-7034505

PATIENT
  Age: 60 Year
  Sex: Male

DRUGS (1)
  1. SAIZEN [Suspect]
     Indication: GROWTH HORMONE DEFICIENCY
     Dates: start: 20100601, end: 20110101

REACTIONS (2)
  - BLOOD GROWTH HORMONE DECREASED [None]
  - NEURODEGENERATIVE DISORDER [None]
